FAERS Safety Report 8192789-3 (Version None)
Quarter: 2012Q1

REPORT INFORMATION
  Report Type: 
  Country: None (occurrence: None)
  Receive Date: 20120308
  Receipt Date: 20120305
  Transmission Date: 20120608
  Serious: No
  Sender: FDA-Public Use
  Company Number: US-PFIZER INC-2012059568

PATIENT

DRUGS (1)
  1. PRISTIQ [Suspect]
     Dosage: UNK
     Dates: start: 20120302

REACTIONS (3)
  - ANXIETY [None]
  - NERVOUSNESS [None]
  - RESTLESSNESS [None]
